FAERS Safety Report 19731696 (Version 2)
Quarter: 2021Q4

REPORT INFORMATION
  Report Type: Report from Study
  Country: CA (occurrence: CA)
  Receive Date: 20210820
  Receipt Date: 20211230
  Transmission Date: 20220303
  Serious: Yes (Hospitalization, Other)
  Sender: FDA-Public Use
  Company Number: CA-GILEAD-2021-0544704

PATIENT
  Age: 50 Year
  Sex: Male

DRUGS (1)
  1. SOFOSBUVIR\VELPATASVIR [Interacting]
     Active Substance: SOFOSBUVIR\VELPATASVIR
     Indication: Chronic hepatitis C
     Dosage: 1 DOSAGE FORM
     Route: 048
     Dates: start: 20210413

REACTIONS (3)
  - Surgery [Unknown]
  - Renal failure [Unknown]
  - Drug interaction [Unknown]
